FAERS Safety Report 23615730 (Version 1)
Quarter: 2024Q1

REPORT INFORMATION
  Report Type: Spontaneous
  Country: AU (occurrence: AU)
  Receive Date: 20240311
  Receipt Date: 20240311
  Transmission Date: 20240410
  Serious: Yes (Hospitalization)
  Sender: FDA-Public Use
  Company Number: AU-AMGEN-AUSSP2024044679

PATIENT
  Sex: Female

DRUGS (46)
  1. BEVACIZUMAB [Suspect]
     Active Substance: BEVACIZUMAB
     Indication: Colorectal cancer metastatic
     Dosage: 250 MILLIGRAM
     Route: 042
     Dates: start: 20231025, end: 20231025
  2. BEVACIZUMAB [Suspect]
     Active Substance: BEVACIZUMAB
     Dosage: 250 MILLIGRAM
     Route: 042
     Dates: start: 20231108, end: 20231108
  3. BEVACIZUMAB [Suspect]
     Active Substance: BEVACIZUMAB
     Dosage: 250 MILLIGRAM
     Route: 042
     Dates: start: 20231122, end: 20231122
  4. BEVACIZUMAB [Suspect]
     Active Substance: BEVACIZUMAB
     Dosage: 250 MILLIGRAM
     Route: 042
     Dates: start: 20231213, end: 20231213
  5. BEVACIZUMAB [Suspect]
     Active Substance: BEVACIZUMAB
     Dosage: 250 MILLIGRAM
     Route: 042
     Dates: start: 20240104, end: 20240104
  6. MAGROLIMAB [Suspect]
     Active Substance: MAGROLIMAB
     Indication: Colorectal cancer metastatic
     Dosage: 49.5 MILLIGRAM
     Route: 042
     Dates: start: 20231024, end: 20231024
  7. MAGROLIMAB [Suspect]
     Active Substance: MAGROLIMAB
     Dosage: 1485 MILLIGRAM
     Route: 042
     Dates: start: 20231101, end: 20231101
  8. MAGROLIMAB [Suspect]
     Active Substance: MAGROLIMAB
     Dosage: 1485 MILLIGRAM
     Route: 042
     Dates: start: 20231115, end: 20231115
  9. MAGROLIMAB [Suspect]
     Active Substance: MAGROLIMAB
     Dosage: 1485 MILLIGRAM
     Route: 042
     Dates: start: 20231121, end: 20231121
  10. MAGROLIMAB [Suspect]
     Active Substance: MAGROLIMAB
     Dosage: 1485 MILLIGRAM
     Route: 042
     Dates: start: 20231129, end: 20231129
  11. MAGROLIMAB [Suspect]
     Active Substance: MAGROLIMAB
     Dosage: 1485 MILLIGRAM
     Route: 042
     Dates: start: 20231205, end: 20231205
  12. MAGROLIMAB [Suspect]
     Active Substance: MAGROLIMAB
     Dosage: 1485 MILLIGRAM
     Route: 042
     Dates: start: 20231212, end: 20231212
  13. MAGROLIMAB [Suspect]
     Active Substance: MAGROLIMAB
     Dosage: 1485 MILLIGRAM
     Route: 042
     Dates: start: 20240103, end: 20240103
  14. FLUOROURACIL [Suspect]
     Active Substance: FLUOROURACIL
     Indication: Colorectal cancer metastatic
     Dosage: 600 MILLIGRAM
     Route: 042
     Dates: start: 20231025, end: 20231025
  15. FLUOROURACIL [Suspect]
     Active Substance: FLUOROURACIL
     Dosage: 3060 MILLIGRAM
     Route: 042
     Dates: start: 20231025, end: 20231027
  16. FLUOROURACIL [Suspect]
     Active Substance: FLUOROURACIL
     Dosage: 3060 MILLIGRAM
     Route: 042
     Dates: start: 20231108, end: 20231110
  17. FLUOROURACIL [Suspect]
     Active Substance: FLUOROURACIL
     Dosage: 600 MILLIGRAM
     Route: 042
     Dates: start: 20231108, end: 20231108
  18. FLUOROURACIL [Suspect]
     Active Substance: FLUOROURACIL
     Dosage: 600 MILLIGRAM
     Route: 042
     Dates: start: 20231122, end: 20231122
  19. FLUOROURACIL [Suspect]
     Active Substance: FLUOROURACIL
     Dosage: 3060 MILLIGRAM
     Route: 042
     Dates: start: 20231122, end: 20231124
  20. FLUOROURACIL [Suspect]
     Active Substance: FLUOROURACIL
     Dosage: 450 MILLIGRAM
     Route: 042
     Dates: start: 20231213, end: 20231213
  21. FLUOROURACIL [Suspect]
     Active Substance: FLUOROURACIL
     Dosage: 2700 MILLIGRAM
     Route: 042
     Dates: start: 20231213, end: 20231215
  22. FLUOROURACIL [Suspect]
     Active Substance: FLUOROURACIL
     Dosage: 2700 MILLIGRAM
     Route: 042
     Dates: start: 20240104
  23. FLUOROURACIL [Suspect]
     Active Substance: FLUOROURACIL
     Dosage: 450 MILLIGRAM
     Route: 042
     Dates: start: 20240104, end: 20240104
  24. IRINOTECAN [Suspect]
     Active Substance: IRINOTECAN
     Indication: Colorectal cancer metastatic
     Dosage: 270 MILLIGRAM
     Route: 042
     Dates: start: 20231025
  25. IRINOTECAN [Suspect]
     Active Substance: IRINOTECAN
     Dosage: UNK
     Route: 042
     Dates: start: 20240104
  26. LEVOLEUCOVORIN [Suspect]
     Active Substance: LEVOLEUCOVORIN
     Indication: Colorectal cancer metastatic
     Dosage: 600 MILLIGRAM
     Route: 042
     Dates: start: 20231025, end: 20231025
  27. LEVOLEUCOVORIN [Suspect]
     Active Substance: LEVOLEUCOVORIN
     Dosage: 600 MILLIGRAM
     Route: 042
     Dates: start: 20231108, end: 20231108
  28. LEVOLEUCOVORIN [Suspect]
     Active Substance: LEVOLEUCOVORIN
     Dosage: 600 MILLIGRAM
     Route: 042
     Dates: start: 20231122, end: 20231122
  29. LEVOLEUCOVORIN [Suspect]
     Active Substance: LEVOLEUCOVORIN
     Dosage: 450 MILLIGRAM
     Route: 042
     Dates: start: 20231213, end: 20231213
  30. LEVOLEUCOVORIN [Suspect]
     Active Substance: LEVOLEUCOVORIN
     Dosage: 450 MILLIGRAM
     Route: 042
     Dates: start: 20240104, end: 20240104
  31. INDAPAMIDE HEMIHYDRATE [Suspect]
     Active Substance: INDAPAMIDE HEMIHYDRATE
     Indication: Colorectal cancer metastatic
     Dosage: 270 MILLIGRAM
     Route: 042
     Dates: start: 20231025, end: 20231025
  32. INDAPAMIDE HEMIHYDRATE [Suspect]
     Active Substance: INDAPAMIDE HEMIHYDRATE
     Dosage: 270 MILLIGRAM
     Route: 042
     Dates: start: 20231108, end: 20231108
  33. INDAPAMIDE HEMIHYDRATE [Suspect]
     Active Substance: INDAPAMIDE HEMIHYDRATE
     Dosage: 200 MILLIGRAM
     Route: 042
     Dates: start: 20231122, end: 20231122
  34. INDAPAMIDE HEMIHYDRATE [Suspect]
     Active Substance: INDAPAMIDE HEMIHYDRATE
     Dosage: 200 MILLIGRAM
     Route: 042
     Dates: start: 20231213, end: 20231213
  35. INDAPAMIDE HEMIHYDRATE [Suspect]
     Active Substance: INDAPAMIDE HEMIHYDRATE
     Dosage: 200 MILLIGRAM
     Route: 042
     Dates: start: 20240104, end: 20240104
  36. COLOXYL WITH SENNA [Concomitant]
     Indication: Prophylaxis
     Dosage: 2 DOSE UNSPECIFIED
     Route: 048
     Dates: start: 2020
  37. MOVICOL [Concomitant]
     Active Substance: POLYETHYLENE GLYCOL 3350\POTASSIUM CHLORIDE\SODIUM BICARBONATE\SODIUM CHLORIDE
     Indication: Prophylaxis
     Dosage: 2 DOSE UNSPECIFIED
     Route: 048
     Dates: start: 2020
  38. OXYCODONE HYDROCHLORIDE [Concomitant]
     Active Substance: OXYCODONE HYDROCHLORIDE
     Indication: Headache
     Dosage: 5 MILLIGRAM
     Route: 048
     Dates: start: 202308
  39. OXYCODONE HYDROCHLORIDE [Concomitant]
     Active Substance: OXYCODONE HYDROCHLORIDE
     Indication: Cancer pain
     Dosage: 5 MILLIGRAM
     Route: 048
     Dates: start: 20231102
  40. VITAMINS [Concomitant]
     Active Substance: VITAMINS
     Indication: Supplementation therapy
     Dosage: DOSE UNSPECIFIED
     Route: 048
     Dates: start: 202308
  41. ACETAMINOPHEN [Concomitant]
     Active Substance: ACETAMINOPHEN
     Indication: Headache
     Dosage: 1 GRAM
     Route: 048
     Dates: start: 202308
  42. ACETAMINOPHEN [Concomitant]
     Active Substance: ACETAMINOPHEN
     Indication: Cancer pain
     Dosage: 2 GRAM
     Route: 048
     Dates: start: 20231102
  43. VITAMIN D [Concomitant]
     Active Substance: VITAMIN D NOS
     Dosage: UNK
  44. IBUPROFEN [Concomitant]
     Active Substance: IBUPROFEN
     Indication: Headache
     Dosage: 400 MILLIGRAM
     Route: 048
     Dates: start: 20231102
  45. CHOLECALCIFEROL [Concomitant]
     Active Substance: CHOLECALCIFEROL
     Indication: Supplementation therapy
     Dosage: 1000 INTERNATIONAL UNIT
     Route: 048
     Dates: start: 202308
  46. HYPROMELLOSES [Concomitant]
     Active Substance: HYPROMELLOSES
     Indication: Prophylaxis
     Dosage: 1 MILLILITER
     Route: 031
     Dates: start: 20240119, end: 20240119

REACTIONS (2)
  - Herpes zoster [Recovering/Resolving]
  - Stoma prolapse [Unknown]

NARRATIVE: CASE EVENT DATE: 20240108
